FAERS Safety Report 14477307 (Version 1)
Quarter: 2018Q1

REPORT INFORMATION
  Report Type: Report from Study
  Country: US (occurrence: US)
  Receive Date: 20180201
  Receipt Date: 20180201
  Transmission Date: 20180509
  Serious: No
  Sender: FDA-Public Use
  Company Number: US-EXELIXIS-CABO-17010664

PATIENT
  Age: 76 Year
  Sex: Male

DRUGS (23)
  1. VITAMIN D3 [Concomitant]
     Active Substance: CHOLECALCIFEROL
  2. BUMETANIDE. [Concomitant]
     Active Substance: BUMETANIDE
  3. AMOXICILLIN. [Concomitant]
     Active Substance: AMOXICILLIN
  4. ANDROGEL [Concomitant]
     Active Substance: TESTOSTERONE
  5. LOSARTAN. [Concomitant]
     Active Substance: LOSARTAN
  6. VITAMIN D [Concomitant]
     Active Substance: CHOLECALCIFEROL
  7. CABOMETYX [Suspect]
     Active Substance: CABOZANTINIB S-MALATE
     Indication: RENAL CANCER
     Dosage: 40 MG, QD
     Route: 048
     Dates: start: 20170801
  8. CARVEDILOL. [Concomitant]
     Active Substance: CARVEDILOL
  9. FAMOTIDINE. [Concomitant]
     Active Substance: FAMOTIDINE
  10. ASPIRIN. [Concomitant]
     Active Substance: ASPIRIN
  11. NITROGLYCERIN. [Concomitant]
     Active Substance: NITROGLYCERIN
  12. ACETAMINOPHEN. [Concomitant]
     Active Substance: ACETAMINOPHEN
  13. CALCITRIOL. [Concomitant]
     Active Substance: CALCITRIOL
  14. TRAMADOL. [Concomitant]
     Active Substance: TRAMADOL
  15. REFRESH [Concomitant]
     Active Substance: UNSPECIFIED INGREDIENT
  16. PRESERVISION AREDS [Concomitant]
     Active Substance: MINERALS\VITAMINS
  17. ATORVASTATIN [Concomitant]
     Active Substance: ATORVASTATIN
  18. XGEVA [Concomitant]
     Active Substance: DENOSUMAB
  19. FOLIC ACID. [Concomitant]
     Active Substance: FOLIC ACID
  20. COLCHICINE. [Concomitant]
     Active Substance: COLCHICINE
  21. LEVOTHYROXINE. [Concomitant]
     Active Substance: LEVOTHYROXINE
  22. CYANOCOBALAMINE [Concomitant]
     Active Substance: CYANOCOBALAMIN
  23. DULOXETINE. [Concomitant]
     Active Substance: DULOXETINE

REACTIONS (1)
  - Aphonia [Unknown]

NARRATIVE: CASE EVENT DATE: 201709
